FAERS Safety Report 18486524 (Version 2)
Quarter: 2021Q2

REPORT INFORMATION
  Report Type: Spontaneous
  Country: CA (occurrence: CA)
  Receive Date: 20201110
  Receipt Date: 20210623
  Transmission Date: 20210717
  Serious: Yes (Other)
  Sender: FDA-Public Use
  Company Number: CA-SAMSUNG BIOEPIS-SB-2020-33836

PATIENT
  Age: 40 Year
  Sex: Female
  Weight: 64 kg

DRUGS (3)
  1. PREDNISONE. [Concomitant]
     Active Substance: PREDNISONE
     Indication: PRODUCT USED FOR UNKNOWN INDICATION
     Route: 065
  2. INFLIXIMAB [Suspect]
     Active Substance: INFLIXIMAB
     Route: 042
  3. INFLIXIMAB [Suspect]
     Active Substance: INFLIXIMAB
     Indication: COLITIS ULCERATIVE
     Route: 042

REACTIONS (12)
  - Condition aggravated [Unknown]
  - Nasopharyngitis [Unknown]
  - Heart rate irregular [Not Recovered/Not Resolved]
  - Parasitic gastroenteritis [Unknown]
  - Cough [Unknown]
  - Feeling cold [Unknown]
  - Pyrexia [Unknown]
  - Heart rate decreased [Unknown]
  - Intentional product use issue [Unknown]
  - Drug level above therapeutic [Unknown]
  - Off label use [Unknown]
  - Weight increased [Unknown]
